FAERS Safety Report 18127710 (Version 1)
Quarter: 2020Q3

REPORT INFORMATION
  Report Type: Spontaneous
  Country: ES (occurrence: ES)
  Receive Date: 20200810
  Receipt Date: 20200810
  Transmission Date: 20201103
  Serious: Yes (Hospitalization, Other)
  Sender: FDA-Public Use
  Company Number: ES-B.I. PHARMACEUTICALS,INC./RIDGEFIELD-2020-12-039692

PATIENT
  Age: 81 Year
  Sex: Female

DRUGS (7)
  1. EFFICIB [Concomitant]
     Active Substance: METFORMIN HYDROCHLORIDE\SITAGLIPTIN PHOSPHATE
     Indication: TYPE 2 DIABETES MELLITUS
     Dosage: 1 TABLET EVERY 12 HOURS; FORM STRENGTH: 50MG/1000MG
     Route: 065
     Dates: start: 20110301
  2. MONUROL [Concomitant]
     Active Substance: FOSFOMYCIN TROMETHAMINE
     Indication: CYSTITIS KLEBSIELLA
     Dosage: 1ST ADMINISTRATION 1 SACHET; IN TOTAL
     Route: 065
  3. TARDYFERON [Concomitant]
     Active Substance: FERROUS SULFATE
     Indication: ANAEMIA
     Dosage: 1 DRAGEE EVERY DAY
     Route: 065
     Dates: start: 20200616
  4. JARDIANCE [Suspect]
     Active Substance: EMPAGLIFLOZIN
     Dosage: 1 TABLET EVERY DAY
     Route: 065
     Dates: start: 20200616
  5. HIPOARTEL [Concomitant]
     Active Substance: ENALAPRIL MALEATE
     Indication: ESSENTIAL HYPERTENSION
     Route: 065
     Dates: start: 20151015
  6. HIDROFEROL [Concomitant]
     Active Substance: CALCIFEDIOL
     Indication: VITAMIN D DECREASED
     Dosage: 1 CAPSULE EVERY 30 DAYS
     Route: 065
     Dates: start: 20200616
  7. JARDIANCE [Suspect]
     Active Substance: EMPAGLIFLOZIN
     Indication: TYPE 2 DIABETES MELLITUS
     Dosage: 1 TABLET EVERY DAY
     Route: 065
     Dates: start: 20181226

REACTIONS (2)
  - Anaemia [Recovering/Resolving]
  - Cystitis bacterial [Recovering/Resolving]

NARRATIVE: CASE EVENT DATE: 20200716
